FAERS Safety Report 6989965-1 (Version None)
Quarter: 2010Q3

REPORT INFORMATION
  Report Type: 
  Country: None (occurrence: None)
  Receive Date: 20100916
  Receipt Date: 20100413
  Transmission Date: 20110219
  Serious: Yes (Other)
  Sender: FDA-Public Use
  Company Number: US-PFIZER INC-2010047360

PATIENT
  Sex: Female
  Weight: 52.154 kg

DRUGS (1)
  1. LYRICA [Suspect]
     Dosage: 50 MG, 1X/DAY
     Dates: start: 20060101

REACTIONS (2)
  - BREAST CANCER [None]
  - MUSCULAR WEAKNESS [None]
